FAERS Safety Report 13328966 (Version 1)
Quarter: 2017Q1

REPORT INFORMATION
  Report Type: Spontaneous
  Country: US (occurrence: US)
  Receive Date: 20170310
  Receipt Date: 20170310
  Transmission Date: 20170428
  Serious: No
  Sender: FDA-Public Use
  Company Number: None

PATIENT
  Age: 60 Year
  Sex: Female

DRUGS (4)
  1. SIMPONI [Suspect]
     Active Substance: GOLIMUMAB
     Indication: HEPATIC STEATOSIS
  2. SIMPONI [Suspect]
     Active Substance: GOLIMUMAB
     Indication: HYPOTHYROIDISM
  3. SIMPONI [Suspect]
     Active Substance: GOLIMUMAB
     Indication: GASTROOESOPHAGEAL REFLUX DISEASE
  4. SIMPONI [Suspect]
     Active Substance: GOLIMUMAB
     Indication: PSORIATIC ARTHROPATHY

REACTIONS (1)
  - Breast cancer female [None]

NARRATIVE: CASE EVENT DATE: 20170301
